FAERS Safety Report 15739366 (Version 1)
Quarter: 2018Q4

REPORT INFORMATION
  Report Type: Report from Study
  Country: US (occurrence: US)
  Receive Date: 20181219
  Receipt Date: 20181219
  Transmission Date: 20190205
  Serious: Yes (Death, Other)
  Sender: FDA-Public Use
  Company Number: US-REGENERON PHARMACEUTICALS, INC.-2018-44797

PATIENT

DRUGS (3)
  1. EYLEA [Suspect]
     Active Substance: AFLIBERCEPT
     Indication: NEOVASCULAR AGE-RELATED MACULAR DEGENERATION
     Dosage: Q4 WEEKS
     Route: 031
     Dates: start: 201711, end: 201711
  2. EYLEA [Suspect]
     Active Substance: AFLIBERCEPT
     Dosage: Q4 WEEKS
     Route: 031
     Dates: start: 20171218, end: 20171218
  3. EYLEA [Suspect]
     Active Substance: AFLIBERCEPT
     Dosage: Q4 WEEKS
     Route: 031
     Dates: start: 20180122, end: 20180122

REACTIONS (1)
  - Death [Fatal]
